FAERS Safety Report 5893107-3 (Version None)
Quarter: 2008Q3

REPORT INFORMATION
  Report Type: 
  Country: None (occurrence: None)
  Receive Date: 20080919
  Receipt Date: 20080916
  Transmission Date: 20090109
  Serious: Yes (Death)
  Sender: FDA-Public Use
  Company Number: GXKR2008DE08854

PATIENT
  Sex: Male

DRUGS (9)
  1. DICLOFENAC (NGX) (DICLOFENAC) UNKNOWN [Suspect]
  2. DOXYCYCLINE [Suspect]
  3. TORSEMIDE [Suspect]
  4. THEOPHYLLIN HEXAL (NGX) (THEOPHYLLINE) UNKNOWN [Suspect]
  5. CIPRAMIL /NET/ (CITALOPRAM HYDROCHLORIDE) [Suspect]
  6. AMIODARONE HYDROCHLORIDE [Suspect]
  7. RISPERDAL [Suspect]
  8. VIANI (FLUTICASONE PROPIONATE, SALMETEROL XINAFOATE) [Suspect]
  9. NEUROCIL (LEVOMEPROMAZINE MALEATE) [Suspect]

REACTIONS (2)
  - LEFT VENTRICULAR FAILURE [None]
  - SMALL INTESTINAL PERFORATION [None]
